FAERS Safety Report 6508463-2 (Version None)
Quarter: 2009Q4

REPORT INFORMATION
  Report Type: 
  Country: None (occurrence: None)
  Receive Date: 20091221
  Receipt Date: 20081124
  Transmission Date: 20100525
  Serious: No
  Sender: FDA-Public Use
  Company Number: US-ASTRAZENECA-2008UW26269

PATIENT
  Age: 45 Year
  Sex: Male
  Weight: 95.3 kg

DRUGS (4)
  1. CRESTOR [Suspect]
     Indication: BLOOD CHOLESTEROL INCREASED
     Route: 048
     Dates: start: 20081103
  2. TRICOR [Suspect]
     Route: 065
     Dates: start: 20081103
  3. ASPIRIN [Concomitant]
  4. IBUPROFEN [Concomitant]

REACTIONS (5)
  - HYPOAESTHESIA [None]
  - INSOMNIA [None]
  - MUSCULAR WEAKNESS [None]
  - MYALGIA [None]
  - SWELLING [None]
